FAERS Safety Report 7729913-X (Version None)
Quarter: 2011Q3

REPORT INFORMATION
  Report Type: 
  Country: None (occurrence: None)
  Receive Date: 20110906
  Receipt Date: 20110830
  Transmission Date: 20111222
  Serious: Yes (Hospitalization, Other)
  Sender: FDA-Public Use
  Company Number: ZA-ROCHE-799753

PATIENT
  Sex: Male
  Weight: 69 kg

DRUGS (5)
  1. LOMOTIL [Concomitant]
     Dosage: FREQUENCY:PRN
  2. ALPRAZOLAM [Concomitant]
     Route: 048
  3. XELODA [Suspect]
     Indication: RECTAL CANCER
     Dosage: BID ON D1-D5 FOR 5 WEEKS
     Route: 048
  4. CATAFLAM [Concomitant]
     Dosage: FREQUENCY: PRN
  5. TRAMADOL HYDROCHLORIDE/ACETAMINOPHEN [Concomitant]
     Route: 048

REACTIONS (2)
  - PNEUMONIA [None]
  - INTERSTITIAL LUNG DISEASE [None]
